FAERS Safety Report 19794611 (Version 3)
Quarter: 2021Q3

REPORT INFORMATION
  Report Type: Spontaneous
  Country: JP (occurrence: JP)
  Receive Date: 20210906
  Receipt Date: 20210916
  Transmission Date: 20211014
  Serious: Yes (Hospitalization)
  Sender: FDA-Public Use
  Company Number: JP-ABBVIE-21K-087-4067368-00

PATIENT
  Age: 30 Year
  Sex: Female

DRUGS (1)
  1. MAVIRET [Suspect]
     Active Substance: GLECAPREVIR\PIBRENTASVIR
     Indication: HEPATITIS C
     Route: 048

REACTIONS (1)
  - Depression [Unknown]
